FAERS Safety Report 16269521 (Version 1)
Quarter: 2019Q2

REPORT INFORMATION
  Report Type: Spontaneous
  Country: US (occurrence: US)
  Receive Date: 20190503
  Receipt Date: 20190503
  Transmission Date: 20190711
  Serious: No
  Sender: FDA-Public Use
  Company Number: US-PFIZER INC-2019184040

PATIENT
  Age: 70 Year

DRUGS (3)
  1. ERYTHROMYCIN. [Suspect]
     Active Substance: ERYTHROMYCIN
     Dosage: UNK
  2. CECLOR [Suspect]
     Active Substance: CEFACLOR
     Dosage: UNK
  3. KEFLEX [Suspect]
     Active Substance: CEPHALEXIN
     Dosage: UNK

REACTIONS (1)
  - Drug hypersensitivity [Unknown]
